FAERS Safety Report 19653462 (Version 2)
Quarter: 2021Q3

REPORT INFORMATION
  Report Type: Spontaneous
  Country: CH (occurrence: CH)
  Receive Date: 20210803
  Receipt Date: 20210811
  Transmission Date: 20211014
  Serious: No
  Sender: FDA-Public Use
  Company Number: CH-ALXN-A202108621

PATIENT
  Age: 32 Year
  Sex: Male

DRUGS (1)
  1. ULTOMIRIS [Suspect]
     Active Substance: RAVULIZUMAB-CWVZ
     Indication: PAROXYSMAL NOCTURNAL HAEMOGLOBINURIA
     Dosage: UNK
     Route: 042
     Dates: start: 20210129

REACTIONS (1)
  - Fatigue [Unknown]
